FAERS Safety Report 5141965-2 (Version None)
Quarter: 2006Q4

REPORT INFORMATION
  Report Type: 
  Country: None (occurrence: None)
  Receive Date: 20061102
  Receipt Date: 20061017
  Transmission Date: 20070319
  Serious: Yes (Other)
  Sender: FDA-Public Use
  Company Number: PHBS2006BR16268

PATIENT
  Age: 37 Year
  Sex: Male
  Weight: 85 kg

DRUGS (1)
  1. DICLOFENAC SODIUM [Suspect]
     Indication: BACK PAIN
     Dosage: 50 MG, ONCE/SINGLE
     Route: 048

REACTIONS (3)
  - LARYNGEAL OEDEMA [None]
  - PRURITUS [None]
  - URTICARIA [None]
